FAERS Safety Report 10307528 (Version 1)
Quarter: 2014Q3

REPORT INFORMATION
  Report Type: Not Available
  Country: US (occurrence: US)
  Receive Date: 20140716
  Receipt Date: 20140716
  Transmission Date: 20150326
  Serious: Yes (Hospitalization)
  Sender: FDA-Public Use
  Company Number: US-LUPIN PHARMACEUTICALS INC.-E2B_00002260

PATIENT
  Age: 55 Year
  Sex: Male
  Weight: 97.61 kg

DRUGS (17)
  1. LISINOPRIL TABLETS USP 40MG [Suspect]
     Active Substance: LISINOPRIL
     Dates: start: 20140613, end: 20140613
  2. LISINOPRIL TABLETS USP 40MG [Suspect]
     Active Substance: LISINOPRIL
     Dates: start: 20140614
  3. LISINOPRIL TABLETS USP 40MG [Suspect]
     Active Substance: LISINOPRIL
     Indication: HYPERTENSION
  4. ATENOLOL. [Suspect]
     Active Substance: ATENOLOL
     Dates: start: 20140611, end: 20140611
  5. LISINOPRIL TABLETS USP 40MG [Suspect]
     Active Substance: LISINOPRIL
     Dates: start: 20140611, end: 20140611
  6. LISINOPRIL TABLETS USP 40MG [Suspect]
     Active Substance: LISINOPRIL
  7. AMLODIPINE [Suspect]
     Active Substance: AMLODIPINE BESYLATE
     Dates: start: 20140613, end: 20140613
  8. PRAVASTATIN [Suspect]
     Active Substance: PRAVASTATIN\PRAVASTATIN SODIUM
     Indication: HYPERCHOLESTEROLAEMIA
  9. ATENOLOL. [Suspect]
     Active Substance: ATENOLOL
     Indication: HYPERTENSION
  10. ATENOLOL. [Suspect]
     Active Substance: ATENOLOL
     Dates: start: 20140613, end: 20140613
  11. ATENOLOL. [Suspect]
     Active Substance: ATENOLOL
     Dates: start: 20140614
  12. AMLODIPINE [Suspect]
     Active Substance: AMLODIPINE BESYLATE
     Indication: HYPERTENSION
  13. PRAVASTATIN [Suspect]
     Active Substance: PRAVASTATIN\PRAVASTATIN SODIUM
     Dates: start: 20140613
  14. ATENOLOL. [Suspect]
     Active Substance: ATENOLOL
  15. PRAVASTATIN [Suspect]
     Active Substance: PRAVASTATIN\PRAVASTATIN SODIUM
     Dates: start: 20140610, end: 20140611
  16. AMLODIPINE [Suspect]
     Active Substance: AMLODIPINE BESYLATE
     Dates: start: 20140611, end: 20140611
  17. AMLODIPINE [Suspect]
     Active Substance: AMLODIPINE BESYLATE
     Dates: start: 20140614

REACTIONS (6)
  - Drug ineffective [Unknown]
  - Blood pressure increased [Recovered/Resolved]
  - Cold sweat [Recovered/Resolved]
  - Chest pain [Recovered/Resolved]
  - Wrong technique in drug usage process [Unknown]
  - Dizziness [Recovered/Resolved]

NARRATIVE: CASE EVENT DATE: 20140611
